FAERS Safety Report 4607493-5 (Version None)
Quarter: 2005Q1

REPORT INFORMATION
  Report Type: 
  Country: None (occurrence: None)
  Receive Date: 20050310
  Receipt Date: 20050225
  Transmission Date: 20050727
  Serious: Yes (Hospitalization, Disabling)
  Sender: FDA-Public Use
  Company Number: 2005039372

PATIENT
  Age: 25 Year
  Sex: Male

DRUGS (1)
  1. FRAGMIN [Suspect]
     Indication: DEEP VEIN THROMBOSIS
     Dosage: 15000 I.U. (SINGLE DOSE), SUBCUTANEOUS
     Route: 058

REACTIONS (6)
  - COMPARTMENT SYNDROME [None]
  - MUSCLE NECROSIS [None]
  - MUSCLE RUPTURE [None]
  - OEDEMA PERIPHERAL [None]
  - PAIN IN EXTREMITY [None]
  - PARAESTHESIA [None]
